FAERS Safety Report 11842793 (Version 1)
Quarter: 2015Q4

REPORT INFORMATION
  Report Type: Spontaneous
  Country: US (occurrence: US)
  Receive Date: 20151216
  Receipt Date: 20151216
  Transmission Date: 20160305
  Serious: Yes (Other)
  Sender: FDA-Public Use
  Company Number: US-BAYER-2015-488795

PATIENT
  Age: 80 Year
  Sex: Female
  Weight: 52.15 kg

DRUGS (1)
  1. ALKA-SELTZER PLUS SEVERE COUGH, MUCUS + CONGESTION DAY/NIGHT [Suspect]
     Active Substance: ACETAMINOPHEN\DEXTROMETHORPHAN HYDROBROMIDE\DOXYLAMINE SUCCINATE\GUAIFENESIN\PHENYLEPHRINE HYDROCHLORIDE
     Indication: NASOPHARYNGITIS
     Dosage: 2 DF, ONCE
     Route: 048
     Dates: start: 20151212, end: 20151212

REACTIONS (3)
  - Product use issue [None]
  - Choking [None]
  - Intentional product use issue [None]

NARRATIVE: CASE EVENT DATE: 20151213
